FAERS Safety Report 7733973-X (Version None)
Quarter: 2011Q3

REPORT INFORMATION
  Report Type: 
  Country: None (occurrence: None)
  Receive Date: 20110907
  Receipt Date: 20110901
  Transmission Date: 20111222
  Serious: No
  Sender: FDA-Public Use
  Company Number: US-PFIZER INC-2011205112

PATIENT
  Sex: Male

DRUGS (1)
  1. PRISTIQ [Suspect]
     Indication: DEPRESSION
     Dosage: UNK
     Dates: start: 20110601, end: 20110831

REACTIONS (4)
  - PERIPHERAL COLDNESS [None]
  - FEELING ABNORMAL [None]
  - FEELING COLD [None]
  - EYE SWELLING [None]
